FAERS Safety Report 11316089 (Version 1)
Quarter: 2015Q3

REPORT INFORMATION
  Report Type: Spontaneous
  Country: CA (occurrence: CA)
  Receive Date: 20150728
  Receipt Date: 20150728
  Transmission Date: 20151125
  Serious: Yes (Other)
  Sender: FDA-Public Use
  Company Number: CA-ABBVIE-15K-028-1431154-00

PATIENT
  Age: 29 Year
  Sex: Male

DRUGS (3)
  1. METHOTREXATE SODIUM. [Suspect]
     Active Substance: METHOTREXATE SODIUM
     Indication: PRODUCT USED FOR UNKNOWN INDICATION
     Route: 065
  2. HUMIRA [Suspect]
     Active Substance: ADALIMUMAB
     Indication: PRODUCT USED FOR UNKNOWN INDICATION
     Route: 058
  3. ENBREL [Suspect]
     Active Substance: ETANERCEPT
     Indication: PSORIATIC ARTHROPATHY
     Route: 058

REACTIONS (15)
  - Aphonia [Unknown]
  - Skin ulcer [Unknown]
  - Mood swings [Unknown]
  - Pruritus [Unknown]
  - Pain in extremity [Unknown]
  - Nervous system disorder [Unknown]
  - Eye pruritus [Unknown]
  - Psoriatic arthropathy [Unknown]
  - Hypoaesthesia [Unknown]
  - Drug hypersensitivity [Unknown]
  - Abdominal distension [Unknown]
  - Insomnia [Unknown]
  - Nail disorder [Unknown]
  - Arthritis [Unknown]
  - Tinea pedis [Unknown]
